FAERS Safety Report 17235392 (Version 1)
Quarter: 2020Q1

REPORT INFORMATION
  Report Type: Spontaneous
  Country: LT (occurrence: LT)
  Receive Date: 20200106
  Receipt Date: 20200106
  Transmission Date: 20200409
  Serious: Yes (Other)
  Sender: FDA-Public Use
  Company Number: LT-ACCORD-168544

PATIENT
  Sex: Female

DRUGS (2)
  1. PACLITAXEL/PACLITAXEL LIPOSOME [Suspect]
     Active Substance: PACLITAXEL
     Indication: UVEAL MELANOMA
     Dosage: UNK
     Route: 065
     Dates: start: 201905
  2. CARBOPLATIN. [Suspect]
     Active Substance: CARBOPLATIN
     Indication: UVEAL MELANOMA
     Dosage: UNK
     Route: 065
     Dates: start: 201905

REACTIONS (2)
  - Metastases to central nervous system [Unknown]
  - Off label use [Unknown]
